FAERS Safety Report 10019740 (Version 3)
Quarter: 2014Q2

REPORT INFORMATION
  Report Type: Spontaneous
  Country: US (occurrence: US)
  Receive Date: 20140318
  Receipt Date: 20140618
  Transmission Date: 20141212
  Serious: No
  Sender: FDA-Public Use
  Company Number: US-GALDERMA-US14000173

PATIENT
  Age: 68 Year
  Sex: Female

DRUGS (9)
  1. MIRVASO (BRIMONIDINE) TOPICAL GEL, 0.33% [Suspect]
     Indication: ROSACEA
     Dosage: 0.33%
     Route: 061
     Dates: start: 20131124, end: 201312
  2. MIRVASO (BRIMONIDINE) TOPICAL GEL, 0.33% [Suspect]
     Dates: start: 20131218
  3. SYNTHROID (LEVOTHYROXINE SODIUM) [Concomitant]
     Indication: HYPOTHYROIDISM
     Dosage: 0.88 MG
     Route: 048
  4. ESTROGEN [Concomitant]
     Route: 048
  5. VITAMIN D [Concomitant]
     Route: 048
  6. CALCIUM [Concomitant]
     Route: 048
  7. COMPOUNDED CREAM [Concomitant]
     Indication: DRY SKIN PROPHYLAXIS
     Route: 061
  8. UNKNOWN CLEANING COMPOUND [Concomitant]
     Route: 061
  9. METRONIDAZOLE (METRONIDAZOLE) [Concomitant]
     Route: 061

REACTIONS (8)
  - Rebound effect [Recovered/Resolved]
  - Condition aggravated [Recovered/Resolved]
  - Swelling face [Recovered/Resolved]
  - Activities of daily living impaired [Recovered/Resolved]
  - Erythema [Recovered/Resolved]
  - Skin burning sensation [Recovered/Resolved]
  - Pain of skin [Recovered/Resolved]
  - Off label use [Recovered/Resolved]
